FAERS Safety Report 8916418 (Version 2)
Quarter: 2012Q4

REPORT INFORMATION
  Report Type: Report from Study
  Country: US (occurrence: US)
  Receive Date: 20121120
  Receipt Date: 20121204
  Transmission Date: 20130627
  Serious: Yes (Life-Threatening, Hospitalization)
  Sender: FDA-Public Use
  Company Number: US-PFIZER INC-2012285706

PATIENT
  Age: 58 Year
  Sex: Female
  Weight: 105 kg

DRUGS (4)
  1. FLUOROURACIL [Suspect]
     Dosage: UNK
     Route: 042
     Dates: end: 20121031
  2. OXALIPLATIN [Suspect]
     Dosage: 85 mg/m2, Route: IN
     Dates: end: 20121031
  3. LEUCOVORIN [Suspect]
     Dosage: 400 mg/m2, UNK
     Route: 042
     Dates: end: 20121031
  4. BLINDED THERAPY [Suspect]
     Dosage: UNK
     Route: 042
     Dates: end: 20121031

REACTIONS (1)
  - Subdural haemorrhage [Unknown]
